FAERS Safety Report 9891581 (Version 1)
Quarter: 2014Q1

REPORT INFORMATION
  Report Type: Spontaneous
  Country: JP (occurrence: JP)
  Receive Date: 20140212
  Receipt Date: 20140212
  Transmission Date: 20141002
  Serious: Yes (Death)
  Sender: FDA-Public Use
  Company Number: JP-MERCK-1402JPN004124

PATIENT
  Age: 70 Year
  Sex: Female

DRUGS (6)
  1. IMIPENEM (+) CILASTATIN SODIUM [Suspect]
     Indication: MYCOBACTERIUM ABSCESSUS INFECTION
     Dosage: 1 G, QD
     Route: 042
  2. METHOTREXATE [Concomitant]
     Indication: RHEUMATOID ARTHRITIS
     Dosage: 8 MG, QW
  3. METHOTREXATE [Concomitant]
     Dosage: 2-MG INCREASE EVERY 2 WEEKS
  4. PREDNISOLONE [Concomitant]
     Indication: POLYMYALGIA RHEUMATICA
     Dosage: 15 MG, QD
  5. PREDNISOLONE [Concomitant]
     Dosage: 5 UNK, UNK
  6. PREDNISOLONE [Concomitant]
     Dosage: 5 MG, QW

REACTIONS (1)
  - Drug ineffective [Fatal]
